FAERS Safety Report 6366601-9 (Version None)
Quarter: 2009Q3

REPORT INFORMATION
  Report Type: 
  Country: None (occurrence: None)
  Receive Date: 20090921
  Receipt Date: 20090911
  Transmission Date: 20100115
  Serious: Yes (Other)
  Sender: FDA-Public Use
  Company Number: BR-ASTRAZENECA-2009SE13190

PATIENT
  Age: 51 Year
  Sex: Female
  Weight: 96 kg

DRUGS (3)
  1. ATACAND HCT [Suspect]
     Indication: HYPERTENSION
     Dosage: 8 +12.5 MG
     Route: 048
     Dates: start: 20060101
  2. RIVOTRIL [Concomitant]
     Indication: INSOMNIA
     Dosage: 50 DROPS
     Route: 048
     Dates: start: 20060101
  3. SIBUTRAMINE [Concomitant]
     Indication: WEIGHT DECREASED
     Route: 048
     Dates: start: 20090801

REACTIONS (4)
  - ABDOMINAL HERNIA [None]
  - HYPERTENSION [None]
  - INFECTION [None]
  - PANCREATIC CARCINOMA [None]
